FAERS Safety Report 5023757-8 (Version None)
Quarter: 2006Q2

REPORT INFORMATION
  Report Type: 
  Country: None (occurrence: None)
  Receive Date: 20060606
  Receipt Date: 20060524
  Transmission Date: 20061013
  Serious: No
  Sender: FDA-Public Use
  Company Number: RS006039-USA

PATIENT
  Age: 60 Year
  Sex: Male

DRUGS (1)
  1. ACIPHEX [Suspect]
     Indication: BARRETT'S OESOPHAGUS
     Dosage: 20 MG, ORAL
     Route: 048
     Dates: start: 20030101

REACTIONS (1)
  - ATRIAL FIBRILLATION [None]
